FAERS Safety Report 11738438 (Version 1)
Quarter: 2015Q4

REPORT INFORMATION
  Report Type: Spontaneous
  Country: TN (occurrence: TN)
  Receive Date: 20151113
  Receipt Date: 20151113
  Transmission Date: 20160304
  Serious: Yes (Other)
  Sender: FDA-Public Use
  Company Number: TN-WATSON-2015-24334

PATIENT
  Age: 26 Year
  Sex: Male

DRUGS (5)
  1. BICLOTYMOL [Concomitant]
     Active Substance: BICLOTYMOL
     Indication: UPPER RESPIRATORY TRACT INFECTION
     Dosage: TID
     Route: 002
  2. LEVOFLOXACIN (UNKNOWN) [Suspect]
     Active Substance: LEVOFLOXACIN
     Dosage: 1000 MG, DAILY
     Route: 065
     Dates: start: 201310
  3. ACETAMINOPHEN. [Concomitant]
     Active Substance: ACETAMINOPHEN
     Indication: UPPER RESPIRATORY TRACT INFECTION
     Dosage: 1000 MG, DAILY
     Route: 065
  4. METRONIDAZOLE (UNKNOWN) [Suspect]
     Active Substance: METRONIDAZOLE
     Indication: UPPER RESPIRATORY TRACT INFECTION
     Dosage: 1000 MG, DAILY
  5. LEVOFLOXACIN (UNKNOWN) [Suspect]
     Active Substance: LEVOFLOXACIN
     Indication: UPPER RESPIRATORY TRACT INFECTION
     Dosage: 500 MG, DAILY
     Route: 065
     Dates: start: 201310

REACTIONS (1)
  - Drug reaction with eosinophilia and systemic symptoms [Recovered/Resolved]
